FAERS Safety Report 24579290 (Version 1)
Quarter: 2024Q4

REPORT INFORMATION
  Report Type: Spontaneous
  Country: DE (occurrence: DE)
  Receive Date: 20241105
  Receipt Date: 20241105
  Transmission Date: 20250115
  Serious: Yes (Hospitalization, Other)
  Sender: ALKEM
  Company Number: DE-ALKEM LABORATORIES LIMITED-DE-ALKEM-2024-23947

PATIENT
  Age: 41 Year

DRUGS (1)
  1. ARIPIPRAZOLE [Suspect]
     Active Substance: ARIPIPRAZOLE
     Indication: Schizophrenia
     Dosage: UNK (TABLET)
     Route: 048

REACTIONS (4)
  - Psychotic symptom [Unknown]
  - Agitation [Unknown]
  - Metabolic syndrome [Unknown]
  - Weight increased [Unknown]
